FAERS Safety Report 5952145-2 (Version None)
Quarter: 2008Q4

REPORT INFORMATION
  Report Type: 
  Country: None (occurrence: None)
  Receive Date: 20081113
  Receipt Date: 20080728
  Transmission Date: 20090506
  Serious: No
  Sender: FDA-Public Use
  Company Number: A0735825A

PATIENT
  Age: 79 Year
  Sex: Female
  Weight: 90.9 kg

DRUGS (4)
  1. COREG [Suspect]
     Indication: HYPERTENSION
     Route: 048
  2. COREG CR [Suspect]
     Indication: HYPERTENSION
     Dosage: 10MG PER DAY
     Route: 048
  3. UNKNOWN MEDICATION [Concomitant]
  4. COZAAR [Concomitant]
     Indication: HYPERTENSION
     Dosage: 100MG PER DAY
     Route: 048
     Dates: start: 19980101

REACTIONS (4)
  - DIZZINESS [None]
  - DRUG INEFFECTIVE [None]
  - HEART RATE INCREASED [None]
  - JOINT SWELLING [None]
